FAERS Safety Report 10913030 (Version 3)
Quarter: 2015Q2

REPORT INFORMATION
  Report Type: Spontaneous
  Country: DE (occurrence: DE)
  Receive Date: 20150313
  Receipt Date: 20150604
  Transmission Date: 20150821
  Serious: Yes (Other)
  Sender: FDA-Public Use
  Company Number: DE-PFIZER INC-2015083705

PATIENT
  Age: 73 Year
  Sex: Female

DRUGS (2)
  1. FOSTER /00500401/ [Concomitant]
     Active Substance: PIROXICAM
     Dosage: UNK
     Dates: start: 201502
  2. XALATAN [Suspect]
     Active Substance: LATANOPROST
     Indication: GLAUCOMA
     Dosage: 1 GTT, 1X/DAY (IN THE EVENING)

REACTIONS (5)
  - Epistaxis [Recovered/Resolved]
  - Cough [Recovered/Resolved]
  - Anosmia [Recovered/Resolved]
  - Incorrect product storage [Unknown]
  - Eye irritation [Recovered/Resolved]

NARRATIVE: CASE EVENT DATE: 20150212
